FAERS Safety Report 15848202 (Version 1)
Quarter: 2019Q1

REPORT INFORMATION
  Report Type: Spontaneous
  Country: FR (occurrence: FR)
  Receive Date: 20190121
  Receipt Date: 20190121
  Transmission Date: 20190417
  Serious: Yes (Death, Other)
  Sender: FDA-Public Use
  Company Number: FR-VELOXIS PHARMACEUTICALS, INC.-2019VELFR1349

PATIENT
  Age: 54 Year
  Sex: Female

DRUGS (2)
  1. MMF [Suspect]
     Active Substance: MYCOPHENOLATE MOFETIL
     Indication: IMMUNOSUPPRESSANT DRUG THERAPY
  2. ENVARSUS XR [Suspect]
     Active Substance: TACROLIMUS
     Indication: RENAL TRANSPLANT
     Route: 065

REACTIONS (8)
  - Viral diarrhoea [Unknown]
  - Trichophytosis [Unknown]
  - Urinary tract infection [Unknown]
  - Device related infection [Unknown]
  - Cytomegalovirus infection [Unknown]
  - Aspergillus infection [Fatal]
  - Dermatophytosis [Unknown]
  - Cryptosporidiosis infection [Unknown]
